FAERS Safety Report 10190811 (Version 2)
Quarter: 2014Q2

REPORT INFORMATION
  Report Type: Report from Study
  Country: US (occurrence: US)
  Receive Date: 20140523
  Receipt Date: 20140612
  Transmission Date: 20141212
  Serious: Yes (Death)
  Sender: FDA-Public Use
  Company Number: PHEH2014US010468

PATIENT
  Age: 55 Year
  Sex: Male

DRUGS (1)
  1. ZOMETA [Suspect]
     Indication: METASTASES TO BONE
     Dosage: 4 MG, ONCE IN 4 WEEKS
     Dates: start: 20120305

REACTIONS (4)
  - Prostate cancer [Fatal]
  - Metastases to bone [Fatal]
  - Bile duct obstruction [Unknown]
  - Liver function test abnormal [Unknown]
